FAERS Safety Report 12839301 (Version 1)
Quarter: 2016Q4

REPORT INFORMATION
  Report Type: Spontaneous
  Country: US (occurrence: US)
  Receive Date: 20161012
  Receipt Date: 20161012
  Transmission Date: 20170207
  Serious: No
  Sender: FDA-Public Use
  Company Number: US-PFIZER INC-2016472926

PATIENT
  Age: 83 Year
  Sex: Male

DRUGS (3)
  1. CARBOPLATIN. [Suspect]
     Active Substance: CARBOPLATIN
     Indication: TONGUE NEOPLASM MALIGNANT STAGE UNSPECIFIED
     Dosage: 130 MG, WEEKLY
     Route: 042
     Dates: start: 20160718, end: 20160718
  2. CARBOPLATIN. [Suspect]
     Active Substance: CARBOPLATIN
     Dosage: 130 MG, WEEKLY
     Route: 042
     Dates: start: 20160721, end: 20160721
  3. CARBOPLATIN. [Suspect]
     Active Substance: CARBOPLATIN
     Dosage: 130 MG, WEEKLY
     Route: 042
     Dates: start: 20160804, end: 20160804

REACTIONS (1)
  - Pruritus [Recovered/Resolved]

NARRATIVE: CASE EVENT DATE: 20160721
